FAERS Safety Report 6474841-3 (Version None)
Quarter: 2009Q4

REPORT INFORMATION
  Report Type: 
  Country: None (occurrence: None)
  Receive Date: 20091204
  Receipt Date: 20090318
  Transmission Date: 20100525
  Serious: Yes (Other)
  Sender: FDA-Public Use
  Company Number: US-ELI_LILLY_AND_COMPANY-US200902003940

PATIENT
  Age: 83 Year
  Sex: Male

DRUGS (3)
  1. HUMULIN 70/30 [Suspect]
     Indication: TYPE 2 DIABETES MELLITUS
  2. HUMALOG MIX 75/25 [Suspect]
     Indication: TYPE 2 DIABETES MELLITUS
     Dates: start: 20050101
  3. HUMALOG MIX 75/25 [Suspect]

REACTIONS (4)
  - ARTERIAL BYPASS OPERATION [None]
  - BACK PAIN [None]
  - BLOOD GLUCOSE INCREASED [None]
  - MALAISE [None]
